FAERS Safety Report 9860662 (Version 1)
Quarter: 2014Q1

REPORT INFORMATION
  Report Type: Spontaneous
  Country: US (occurrence: None)
  Receive Date: 20140131
  Receipt Date: 20140131
  Transmission Date: 20141002
  Serious: Yes (Disabling)
  Sender: FDA-Public Use
  Company Number: None

PATIENT
  Age: 70 Year
  Sex: Male
  Weight: 90.72 kg

DRUGS (2)
  1. OMEPRAZOLE [Suspect]
     Indication: DYSPEPSIA
     Route: 048
     Dates: start: 20140101, end: 20140128
  2. OMEPRAZOLE [Suspect]
     Indication: FLATULENCE
     Route: 048
     Dates: start: 20140101, end: 20140128

REACTIONS (2)
  - Drug effect decreased [None]
  - Gastric disorder [None]
